FAERS Safety Report 6251833-0 (Version None)
Quarter: 2009Q2

REPORT INFORMATION
  Report Type: 
  Country: None (occurrence: None)
  Receive Date: 20090630
  Receipt Date: 20090617
  Transmission Date: 20091009
  Serious: Yes (Death, Hospitalization, Other)
  Sender: FDA-Public Use
  Company Number: US-PFIZER INC-2009228998

PATIENT
  Age: 38 Year
  Sex: Female

DRUGS (7)
  1. PREDNISONE [Suspect]
     Indication: IMMUNOSUPPRESSION
     Dosage: 5 MG, UID/1X/DAY
     Route: 065
  2. PROGRAF [Suspect]
     Indication: LUNG TRANSPLANT
     Dosage: UNK
     Route: 065
  3. METHYLPREDNISOLONE AND METHYLPREDNISOLONE ACETATE AND METHYLPREDNISOLO [Suspect]
     Indication: LUNG TRANSPLANT REJECTION
     Dosage: 500 MG, UID/1X/DAY
     Route: 042
  4. AZATHIOPRINE [Suspect]
     Indication: LUNG TRANSPLANT
     Dosage: UNK
     Route: 065
  5. ANTITHYMOCYTE IMMUNOGLOBULIN [Suspect]
     Indication: LUNG TRANSPLANT REJECTION
     Dosage: 1.5 MG/KG, UID/1X/DAY
     Route: 065
  6. ALEMTUZUMAB [Suspect]
     Indication: LUNG TRANSPLANT REJECTION
     Dosage: 30 MG
     Route: 065
     Dates: start: 20060501, end: 20060501
  7. VORICONAZOLE [Concomitant]
     Dosage: UNK

REACTIONS (6)
  - CD4 LYMPHOCYTES DECREASED [None]
  - LUNG INFECTION [None]
  - LUNG TRANSPLANT REJECTION [None]
  - PROGRESSIVE MULTIFOCAL LEUKOENCEPHALOPATHY [None]
  - RESPIRATORY FAILURE [None]
  - SEPSIS [None]
